FAERS Safety Report 5780036-9 (Version None)
Quarter: 2008Q2

REPORT INFORMATION
  Report Type: 
  Country: None (occurrence: None)
  Receive Date: 20080620
  Receipt Date: 20080616
  Transmission Date: 20081010
  Serious: Yes (Other)
  Sender: FDA-Public Use
  Company Number: GB-ROCHE-570519

PATIENT
  Sex: Female
  Weight: 152.4 kg

DRUGS (2)
  1. ORLISTAT [Suspect]
     Indication: OBESITY
     Route: 048
     Dates: start: 20080513
  2. CLOMIPRAMINE HCL [Concomitant]
     Indication: DEPRESSION
     Dosage: REPORTED AS CHLORMIPRAMINE
     Route: 048

REACTIONS (1)
  - CERVIX CARCINOMA [None]
